FAERS Safety Report 7502682-4 (Version None)
Quarter: 2011Q2

REPORT INFORMATION
  Report Type: 
  Country: None (occurrence: None)
  Receive Date: 20110525
  Receipt Date: 20110512
  Transmission Date: 20111010
  Serious: Yes (Other)
  Sender: FDA-Public Use
  Company Number: PHEH2008US09991

PATIENT
  Age: 76 Year
  Sex: Female

DRUGS (2)
  1. FISLODEX [Concomitant]
  2. ZOMETA [Suspect]
     Indication: BREAST CANCER

REACTIONS (2)
  - JAW DISORDER [None]
  - BONE DISORDER [None]
